FAERS Safety Report 19108510 (Version 1)
Quarter: 2021Q2

REPORT INFORMATION
  Report Type: Spontaneous
  Country: UY (occurrence: UY)
  Receive Date: 20210408
  Receipt Date: 20210408
  Transmission Date: 20210717
  Serious: Yes (Other)
  Sender: FDA-Public Use
  Company Number: UY-GLAXOSMITHKLINE-UY2021073466

PATIENT
  Sex: Female

DRUGS (1)
  1. ZINNAT [Suspect]
     Active Substance: CEFUROXIME
     Indication: PRODUCT USED FOR UNKNOWN INDICATION
     Dosage: 250 MG
     Route: 048

REACTIONS (3)
  - Abnormal faeces [Unknown]
  - Haematochezia [Unknown]
  - Diarrhoea [Unknown]
